FAERS Safety Report 26158818 (Version 1)
Quarter: 2025Q4

REPORT INFORMATION
  Report Type: Spontaneous
  Country: CN (occurrence: CN)
  Receive Date: 20251215
  Receipt Date: 20251215
  Transmission Date: 20260118
  Serious: Yes (Hospitalization)
  Sender: NOVARTIS
  Company Number: CN-002147023-NVSC2025CN190550

PATIENT
  Age: 72 Year
  Sex: Female
  Weight: 57.7 kg

DRUGS (1)
  1. GLIVEC [Suspect]
     Active Substance: IMATINIB MESYLATE
     Indication: Small intestine carcinoma
     Dosage: 0.4 G, QD
     Route: 048
     Dates: start: 20250815, end: 20250828

REACTIONS (10)
  - Drug eruption [Recovering/Resolving]
  - Dermatitis contact [Unknown]
  - Skin exfoliation [Recovering/Resolving]
  - Erythema [Recovering/Resolving]
  - Mucosal discolouration [Recovering/Resolving]
  - Oedema peripheral [Recovering/Resolving]
  - Blood pressure abnormal [Unknown]
  - Skin discolouration [Recovering/Resolving]
  - Pruritus [Unknown]
  - Dry skin [Recovering/Resolving]

NARRATIVE: CASE EVENT DATE: 20250101
